FAERS Safety Report 11803803 (Version 2)
Quarter: 2016Q1

REPORT INFORMATION
  Report Type: Report from Study
  Country: ES (occurrence: ES)
  Receive Date: 20151204
  Receipt Date: 20160321
  Transmission Date: 20160525
  Serious: Yes (Other)
  Sender: FDA-Public Use
  Company Number: ES-ABBVIE-15P-144-1510551-00

PATIENT
  Age: 74 Year
  Sex: Male

DRUGS (2)
  1. DUODOPA [Suspect]
     Active Substance: CARBIDOPA\LEVODOPA
     Indication: PARKINSON^S DISEASE
     Dosage: CONTINUOUS DOSE 4.3 ML/HOUR
     Route: 050
     Dates: start: 20130124, end: 201603
  2. DUODOPA [Suspect]
     Active Substance: CARBIDOPA\LEVODOPA
     Dosage: CONTINUOUS DOSE 4 ML/HOUR
     Route: 050
     Dates: start: 201603

REACTIONS (6)
  - Disease progression [Unknown]
  - Mobility decreased [Unknown]
  - Dyskinesia [Unknown]
  - Fall [Unknown]
  - Gait disturbance [Recovering/Resolving]
  - Hip fracture [Unknown]

NARRATIVE: CASE EVENT DATE: 201510
